FAERS Safety Report 21859821 (Version 1)
Quarter: 2023Q1

REPORT INFORMATION
  Report Type: Spontaneous
  Country: US (occurrence: None)
  Receive Date: 20230112
  Receipt Date: 20230112
  Transmission Date: 20230417
  Serious: No
  Sender: FDA-Public Use
  Company Number: None

PATIENT
  Sex: Male
  Weight: 86.18 kg

DRUGS (8)
  1. LEUKINE [Suspect]
     Active Substance: SARGRAMOSTIM
     Indication: Brain neoplasm malignant
     Dosage: FREQUENCY : WEEKLY;?
     Route: 058
     Dates: start: 202109
  2. COLACE [Concomitant]
     Active Substance: DOCUSATE SODIUM
  3. ELIQUIS [Concomitant]
     Active Substance: APIXABAN
  4. KEPPRA [Concomitant]
     Active Substance: LEVETIRACETAM
  5. LIPITOR [Concomitant]
     Active Substance: ATORVASTATIN CALCIUM
  6. METFORMIN [Concomitant]
     Active Substance: METFORMIN HYDROCHLORIDE
  7. SENNA [Concomitant]
     Active Substance: SENNA LEAF\SENNOSIDES\SENNOSIDES A AND B
  8. VIMPAT [Concomitant]
     Active Substance: LACOSAMIDE

REACTIONS (2)
  - Hypersensitivity [None]
  - Therapy cessation [None]
